FAERS Safety Report 8380170-3 (Version None)
Quarter: 2012Q2

REPORT INFORMATION
  Report Type: 
  Country: None (occurrence: None)
  Receive Date: 20120523
  Receipt Date: 20120522
  Transmission Date: 20120825
  Serious: Yes (Death)
  Sender: FDA-Public Use
  Company Number: US-ABBOTT-12P-163-0930096-00

PATIENT
  Sex: Male
  Weight: 62.652 kg

DRUGS (8)
  1. ALBUTEROL [Concomitant]
     Indication: PRODUCT USED FOR UNKNOWN INDICATION
  2. ALBUTEROL [Concomitant]
     Indication: CHRONIC OBSTRUCTIVE PULMONARY DISEASE
  3. HUMIRA [Suspect]
     Indication: PSORIASIS
     Dates: start: 20101130, end: 20110113
  4. HYDROXYZINE [Concomitant]
     Indication: PRURITUS
  5. PROAIR HFA [Concomitant]
     Indication: CHRONIC OBSTRUCTIVE PULMONARY DISEASE
  6. DIPHENHYDRAMINE HCL [Concomitant]
     Indication: PRURITUS
  7. HUMIRA [Suspect]
     Indication: PSORIATIC ARTHROPATHY
  8. ADVAIR DISKUS 100/50 [Concomitant]
     Indication: CHRONIC OBSTRUCTIVE PULMONARY DISEASE

REACTIONS (1)
  - DEATH [None]
